FAERS Safety Report 6589485-2 (Version None)
Quarter: 2010Q1

REPORT INFORMATION
  Report Type: 
  Country: None (occurrence: None)
  Receive Date: 20100212
  Receipt Date: 20100127
  Transmission Date: 20100710
  Serious: Yes (Hospitalization)
  Sender: FDA-Public Use
  Company Number: 003889

PATIENT
  Sex: Female

DRUGS (2)
  1. KEPPRA [Suspect]
     Indication: MYOCLONIC EPILEPSY
     Dosage: (250 MG BID ORAL), (1000 MG BID, 1000MG AM AND 1000MG PM ORAL)
     Route: 048
     Dates: start: 20091201
  2. KEPPRA [Suspect]
     Indication: MYOCLONIC EPILEPSY
     Dosage: (250 MG BID ORAL), (1000 MG BID, 1000MG AM AND 1000MG PM ORAL)
     Route: 048
     Dates: start: 20091201

REACTIONS (1)
  - CONVULSION [None]
